FAERS Safety Report 9613632 (Version 3)
Quarter: 2014Q2

REPORT INFORMATION
  Report Type: Spontaneous
  Country: US (occurrence: US)
  Receive Date: 20131010
  Receipt Date: 20140604
  Transmission Date: 20141212
  Serious: Yes (Hospitalization)
  Sender: FDA-Public Use
  Company Number: US-B.I. PHARMACEUTICALS,INC./RIDGEFIELD-2013-BI-31353BP

PATIENT
  Age: 82 Year
  Sex: Female
  Weight: 81.19 kg

DRUGS (12)
  1. PRADAXA [Suspect]
     Indication: ATRIAL FIBRILLATION
     Dosage: 300 MG
     Route: 048
     Dates: start: 20111017, end: 20111101
  2. PRADAXA [Suspect]
     Indication: THROMBOSIS PROPHYLAXIS
     Dosage: 150 MG
     Route: 048
     Dates: start: 20111101, end: 20120908
  3. LABETALOL [Concomitant]
     Dosage: 400 MG
     Route: 048
     Dates: start: 2010, end: 201209
  4. CLONIDINE [Concomitant]
     Dosage: 0.4 MG
     Route: 048
     Dates: start: 2010, end: 201209
  5. DORZOLAMIDE-TIMOLOL [Concomitant]
     Route: 065
     Dates: start: 2004
  6. LEVOTHYROXINE [Concomitant]
     Dosage: 0.075 MG
     Route: 048
     Dates: start: 2011
  7. ASPIRIN [Concomitant]
     Route: 065
  8. BENICAR [Concomitant]
     Dosage: 40 MG
     Route: 048
     Dates: start: 2004
  9. HCTZ/SPIRONOLACTONE [Concomitant]
     Route: 048
     Dates: start: 2011
  10. LIPITOR [Concomitant]
     Dosage: 10 MG
     Route: 048
     Dates: start: 2010
  11. ZOFRAN [Concomitant]
     Route: 048
  12. TAZTIA [Concomitant]
     Route: 065
     Dates: start: 201203, end: 201209

REACTIONS (5)
  - Gastrointestinal haemorrhage [Recovered/Resolved]
  - Coagulopathy [Unknown]
  - Haemorrhagic anaemia [Unknown]
  - Epistaxis [Unknown]
  - Increased tendency to bruise [Unknown]
